FAERS Safety Report 8443647-8 (Version None)
Quarter: 2012Q2

REPORT INFORMATION
  Report Type: 
  Country: None (occurrence: None)
  Receive Date: 20120618
  Receipt Date: 20120608
  Transmission Date: 20120825
  Serious: Yes (Hospitalization)
  Sender: FDA-Public Use
  Company Number: DE-JNJFOC-20120605284

PATIENT
  Sex: Male

DRUGS (5)
  1. REMICADE [Suspect]
     Dosage: SECOND INFUSION
     Route: 042
  2. ENOXAPARIN SODIUM [Concomitant]
     Route: 065
  3. PREDNISOLONE [Concomitant]
     Route: 065
  4. MESALAMINE [Concomitant]
     Route: 065
  5. REMICADE [Suspect]
     Indication: CROHN'S DISEASE
     Route: 042

REACTIONS (1)
  - ATRIOVENTRICULAR BLOCK [None]
